FAERS Safety Report 7167259-1 (Version None)
Quarter: 2010Q4

REPORT INFORMATION
  Report Type: 
  Country: None (occurrence: None)
  Receive Date: 20101213
  Receipt Date: 20101213
  Transmission Date: 20110411
  Serious: Yes (Other)
  Sender: FDA-Public Use
  Company Number: None

PATIENT
  Sex: Female

DRUGS (1)
  1. SIMPONI [Suspect]
     Indication: ANKYLOSING SPONDYLITIS
     Dosage: 50MG EVERY MONTH SQ
     Route: 058
     Dates: start: 20100830

REACTIONS (3)
  - HEADACHE [None]
  - MIGRAINE [None]
  - VOMITING [None]
